FAERS Safety Report 5036569-6 (Version None)
Quarter: 2006Q2

REPORT INFORMATION
  Report Type: 
  Country: None (occurrence: None)
  Receive Date: 20060614
  Receipt Date: 20051108
  Transmission Date: 20061013
  Serious: Yes (Other)
  Sender: FDA-Public Use
  Company Number: 430094K05USA

PATIENT
  Age: 43 Year
  Sex: Female
  Weight: 82.5547 kg

DRUGS (1)
  1. NOVANTRONE [Suspect]
     Indication: MULTIPLE SCLEROSIS
     Dosage: 1 IN 3 MONTHS, INTRAVENOUS
     Route: 042
     Dates: start: 20050926

REACTIONS (5)
  - APPLICATION SITE ATROPHY [None]
  - APPLICATION SITE DISCOLOURATION [None]
  - INFUSION SITE BRUISING [None]
  - INFUSION SITE PAIN [None]
  - VENOUS THROMBOSIS [None]
